FAERS Safety Report 13296134 (Version 1)
Quarter: 2017Q1

REPORT INFORMATION
  Report Type: Spontaneous
  Country: GB (occurrence: GB)
  Receive Date: 20170304
  Receipt Date: 20170304
  Transmission Date: 20170428
  Serious: Yes (Disabling)
  Sender: FDA-Public Use
  Company Number: GB-ACCORD-048679

PATIENT
  Age: 59 Year
  Sex: Female
  Weight: 86 kg

DRUGS (3)
  1. E 45 [Concomitant]
     Active Substance: LANOLIN\LIGHT MINERAL OIL\PARAFFIN
     Dosage: APPLY AS NEEDED
     Dates: start: 20160707
  2. LETROZOLE. [Suspect]
     Active Substance: LETROZOLE
     Indication: PRODUCT USED FOR UNKNOWN INDICATION
     Dates: start: 20160615
  3. LOSARTAN. [Concomitant]
     Active Substance: LOSARTAN
     Dates: start: 20151105

REACTIONS (4)
  - Confusional state [Unknown]
  - Limb discomfort [Recovered/Resolved]
  - Dizziness [Unknown]
  - Arthralgia [Unknown]

NARRATIVE: CASE EVENT DATE: 20160701
